FAERS Safety Report 18747652 (Version 2)
Quarter: 2021Q1

REPORT INFORMATION
  Report Type: Spontaneous
  Country: US (occurrence: US)
  Receive Date: 20210115
  Receipt Date: 20210304
  Transmission Date: 20210419
  Serious: No
  Sender: FDA-Public Use
  Company Number: US-STASON PHARMACEUTICALS, INC.-2105408

PATIENT
  Age: 13 Year
  Sex: Female
  Weight: 60.8 kg

DRUGS (1)
  1. MERCAPTOPURINE. [Suspect]
     Active Substance: MERCAPTOPURINE

REACTIONS (6)
  - Febrile neutropenia [None]
  - Encephalopathy [None]
  - Nausea [None]
  - Gait disturbance [None]
  - Hypokalaemia [None]
  - Tremor [None]
